FAERS Safety Report 18393950 (Version 2)
Quarter: 2020Q4

REPORT INFORMATION
  Report Type: Spontaneous
  Country: US (occurrence: US)
  Receive Date: 20201016
  Receipt Date: 20201218
  Transmission Date: 20210114
  Serious: Yes (Hospitalization, Other)
  Sender: FDA-Public Use
  Company Number: US-GLAXOSMITHKLINE-US2020GSK201880

PATIENT
  Age: 32 Year
  Sex: Male

DRUGS (1)
  1. BUPROPION. [Suspect]
     Active Substance: BUPROPION
     Indication: PRODUCT USED FOR UNKNOWN INDICATION
     Dosage: 180 DF
     Route: 048

REACTIONS (13)
  - Toxicity to various agents [Unknown]
  - Dyskinesia [Recovered/Resolved]
  - Areflexia [Recovered/Resolved]
  - Cardio-respiratory arrest [Unknown]
  - Coma [Recovered/Resolved]
  - Unresponsive to stimuli [Recovered/Resolved]
  - Hypotension [Unknown]
  - Pupil fixed [Recovered/Resolved]
  - Overdose [Unknown]
  - Generalised tonic-clonic seizure [Recovered/Resolved]
  - Pulseless electrical activity [Unknown]
  - Pupillary reflex impaired [Recovered/Resolved]
  - Oculocephalogyric reflex absent [Recovered/Resolved]
